FAERS Safety Report 8053480-7 (Version None)
Quarter: 2012Q1

REPORT INFORMATION
  Report Type: 
  Country: None (occurrence: None)
  Receive Date: 20120118
  Receipt Date: 20120112
  Transmission Date: 20120608
  Serious: Yes (Other)
  Sender: FDA-Public Use
  Company Number: US-PFIZER INC-2012010628

PATIENT
  Sex: Female

DRUGS (1)
  1. PREMARIN [Suspect]
     Dosage: UNK

REACTIONS (6)
  - ASTHMA [None]
  - TREMOR [None]
  - HYPERTENSION [None]
  - RESTLESS LEGS SYNDROME [None]
  - ANXIETY [None]
  - DRUG INEFFECTIVE [None]
